FAERS Safety Report 8765499 (Version 2)
Quarter: 2012Q4

REPORT INFORMATION
  Report Type: 
  Country: GB (occurrence: GB)
  Receive Date: 20120903
  Receipt Date: 20121106
  Transmission Date: 20130627
  Serious: Yes (Hospitalization, Other)
  Sender: FDA-Public Use
  Company Number: PHFR2012GB004754

PATIENT
  Sex: Male

DRUGS (5)
  1. CLOZARIL [Suspect]
     Indication: SCHIZOPHRENIA
     Route: 048
     Dates: start: 20011210
  2. CLOZARIL [Suspect]
     Dosage: 650 mg daily
     Route: 048
  3. HYOSCINE HYDROBROMIDE [Concomitant]
     Indication: SALIVARY HYPERSECRETION
  4. LACTULOSE [Concomitant]
     Indication: CONSTIPATION
     Dosage: 20 ml daily
     Route: 048
  5. OMEPRAZOLE [Concomitant]
     Indication: GASTRITIS
     Dosage: 40 mg, UNK
     Route: 048

REACTIONS (3)
  - Gastritis alcoholic haemorrhagic [Recovered/Resolved]
  - Haematemesis [Unknown]
  - Gastrointestinal haemorrhage [Unknown]
